FAERS Safety Report 7950129-6 (Version None)
Quarter: 2011Q4

REPORT INFORMATION
  Report Type: 
  Country: None (occurrence: None)
  Receive Date: 20111130
  Receipt Date: 20111121
  Transmission Date: 20120403
  Serious: Yes (Life-Threatening, Hospitalization)
  Sender: FDA-Public Use
  Company Number: GB-JNJFOC-20110808132

PATIENT
  Sex: Female

DRUGS (8)
  1. PREGABALIN [Concomitant]
  2. METHOTREXATE [Concomitant]
     Route: 058
  3. FOLIC ACID [Concomitant]
  4. HYDROXYCHLOROQUINE SULFATE [Concomitant]
  5. LEVOTHYROXINE SODIUM [Concomitant]
  6. SIMPONI [Suspect]
     Indication: PRODUCT USED FOR UNKNOWN INDICATION
     Route: 058
     Dates: start: 20110728, end: 20110801
  7. SIMPONI [Suspect]
     Route: 058
     Dates: start: 20110201
  8. OMEPRAZOLE [Concomitant]

REACTIONS (3)
  - RESPIRATORY ARREST [None]
  - CONVULSION [None]
  - MENINGITIS [None]
